FAERS Safety Report 5266334-6 (Version None)
Quarter: 2007Q1

REPORT INFORMATION
  Report Type: 
  Country: None (occurrence: None)
  Receive Date: 20070315
  Receipt Date: 20070301
  Transmission Date: 20070707
  Serious: Yes (Death)
  Sender: FDA-Public Use
  Company Number: AT-ELI_LILLY_AND_COMPANY-AT200702004778

PATIENT
  Age: 56 Year
  Sex: Male
  Weight: 80 kg

DRUGS (3)
  1. CYMBALTA [Suspect]
     Indication: DEPRESSION
     Dosage: 60 MG, DAILY (1/D)
     Route: 048
     Dates: start: 20070212
  2. ENALAPRIL MALEATE [Concomitant]
     Dosage: 2.5 MG, DAILY (1/D)
     Route: 048
  3. THROMBO ASS [Concomitant]
     Dosage: 100 MG, DAILY (1/D)
     Route: 048

REACTIONS (2)
  - ARRHYTHMIA [None]
  - BUNDLE BRANCH BLOCK BILATERAL [None]
